FAERS Safety Report 6504589-8 (Version None)
Quarter: 2009Q4

REPORT INFORMATION
  Report Type: 
  Country: None (occurrence: None)
  Receive Date: 20091215
  Receipt Date: 20091130
  Transmission Date: 20100525
  Serious: Yes (Hospitalization)
  Sender: FDA-Public Use
  Company Number: 2009BM000334

PATIENT
  Age: 8 Year
  Sex: Female
  Weight: 16.3295 kg

DRUGS (1)
  1. NAGLAZYME [Suspect]
     Indication: MUCOPOLYSACCHARIDOSIS VI
     Dosage: 28 MG; QW; IVDRP
     Route: 041
     Dates: start: 20090409

REACTIONS (3)
  - CEREBRAL VENTRICLE DILATATION [None]
  - HEADACHE [None]
  - VOMITING [None]
